FAERS Safety Report 11074092 (Version 1)
Quarter: 2015Q2

REPORT INFORMATION
  Report Type: Spontaneous
  Country: None (occurrence: None)
  Receive Date: 20150428
  Receipt Date: 20150428
  Transmission Date: 20150821
  Serious: Yes (Death)
  Sender: FDA-Public Use
  Company Number: None

PATIENT
  Age: 89 Year
  Sex: Female
  Weight: 96.3 kg

DRUGS (14)
  1. LEVOTHYROXINE [Concomitant]
     Active Substance: LEVOTHYROXINE
  2. FAMOTIDINE. [Concomitant]
     Active Substance: FAMOTIDINE
  3. ENOXAPARIN [Suspect]
     Active Substance: ENOXAPARIN
     Indication: ATRIAL FIBRILLATION
     Dosage: -- --
     Dates: start: 20150418, end: 20150421
  4. METOPROLOL [Concomitant]
     Active Substance: METOPROLOL
  5. DIGOXIN. [Concomitant]
     Active Substance: DIGOXIN
  6. BUMETANIDE. [Concomitant]
     Active Substance: BUMETANIDE
  7. ACETAMINOPHEN. [Concomitant]
     Active Substance: ACETAMINOPHEN
  8. ASPIRIN. [Concomitant]
     Active Substance: ASPIRIN
  9. ATORVASTATIN [Concomitant]
     Active Substance: ATORVASTATIN
  10. WARFARIN [Concomitant]
     Active Substance: WARFARIN
  11. METRONIDAZOLE. [Concomitant]
     Active Substance: METRONIDAZOLE
  12. ENOXAPARIN [Suspect]
     Active Substance: ENOXAPARIN
     Dosage: -- --
     Dates: start: 20150418, end: 20150421
  13. POTASSIUM CHLORIDE. [Concomitant]
     Active Substance: POTASSIUM CHLORIDE
  14. DUO-NEB [Concomitant]

REACTIONS (2)
  - Abdominal wall haematoma [None]
  - Injection site haematoma [None]

NARRATIVE: CASE EVENT DATE: 20150421
